FAERS Safety Report 20611482 (Version 1)
Quarter: 2022Q1

REPORT INFORMATION
  Report Type: Spontaneous
  Country: US (occurrence: None)
  Receive Date: 20220317
  Receipt Date: 20220317
  Transmission Date: 20220424
  Serious: No
  Sender: FDA-Public Use
  Company Number: None

PATIENT
  Age: 69 Year
  Sex: Female
  Weight: 44.01 kg

DRUGS (18)
  1. LEVOFLOXACIN [Suspect]
     Active Substance: LEVOFLOXACIN
     Indication: Infection
     Dosage: OTHER QUANTITY : 1 TABLET(S);?FREQUENCY : DAILY;?
     Route: 048
     Dates: start: 20220316, end: 20220317
  2. TACROLIMUS [Concomitant]
     Active Substance: TACROLIMUS
  3. VITILIGO SKIN OINTMENT [Concomitant]
  4. GABAPENTIN [Concomitant]
     Active Substance: GABAPENTIN
  5. LEVOTHYROXINE [Concomitant]
     Active Substance: LEVOTHYROXINE
  6. SIMVASTATIN [Concomitant]
     Active Substance: SIMVASTATIN
  7. ESTRADIOL [Concomitant]
     Active Substance: ESTRADIOL
  8. FOLIC ACID [Concomitant]
     Active Substance: FOLIC ACID
  9. POLYPODIUM LEUCOTOMOS [Concomitant]
  10. ASPIRIN [Concomitant]
     Active Substance: ASPIRIN
  11. FISH OIL [Concomitant]
     Active Substance: FISH OIL
  12. VITAMIN D3 [Concomitant]
     Active Substance: CHOLECALCIFEROL
  13. VITAMIN B12 [Concomitant]
     Active Substance: CYANOCOBALAMIN
  14. METHYLCOBALAMIN [Concomitant]
     Active Substance: METHYLCOBALAMIN
  15. ACETAMINOPHEN [Concomitant]
     Active Substance: ACETAMINOPHEN
  16. IBUPROFEN [Concomitant]
     Active Substance: IBUPROFEN
  17. NAPROXEN [Concomitant]
     Active Substance: NAPROXEN
  18. UNSPECIFIED INGREDIENT [Concomitant]
     Active Substance: UNSPECIFIED INGREDIENT

REACTIONS (5)
  - Pain [None]
  - Nasal discomfort [None]
  - Dizziness [None]
  - Nasal congestion [None]
  - Paranasal sinus discomfort [None]

NARRATIVE: CASE EVENT DATE: 20220317
